FAERS Safety Report 7113149-X (Version None)
Quarter: 2010Q4

REPORT INFORMATION
  Report Type: 
  Country: None (occurrence: None)
  Receive Date: 20101119
  Receipt Date: 20101110
  Transmission Date: 20110411
  Serious: Yes (Death)
  Sender: FDA-Public Use
  Company Number: US-JNJFOC-20101006064

PATIENT
  Sex: Male
  Weight: 90.72 kg

DRUGS (10)
  1. INFLIXIMAB, RECOMBINANT [Suspect]
     Indication: CROHN'S DISEASE
     Route: 042
  2. INFLIXIMAB, RECOMBINANT [Suspect]
     Route: 042
  3. INFLIXIMAB, RECOMBINANT [Suspect]
     Route: 042
  4. INFLIXIMAB, RECOMBINANT [Suspect]
     Route: 042
  5. INFLIXIMAB, RECOMBINANT [Suspect]
     Route: 042
  6. INFLIXIMAB, RECOMBINANT [Suspect]
     Route: 042
  7. ANTIHISTAMINES [Concomitant]
     Indication: PREMEDICATION
  8. ACETAMINOPHEN [Concomitant]
     Indication: PREMEDICATION
  9. 6-MERCAPTOPURINE [Concomitant]
     Indication: CROHN'S DISEASE
  10. MESALAMINE [Concomitant]
     Indication: CROHN'S DISEASE

REACTIONS (3)
  - HEPATIC CIRRHOSIS [None]
  - HEPATIC NEOPLASM MALIGNANT [None]
  - METASTATIC NEOPLASM [None]
